FAERS Safety Report 15494286 (Version 1)
Quarter: 2018Q4

REPORT INFORMATION
  Report Type: Spontaneous
  Country: US (occurrence: US)
  Receive Date: 20181012
  Receipt Date: 20181012
  Transmission Date: 20190205
  Serious: Yes (Hospitalization, Other)
  Sender: FDA-Public Use
  Company Number: US-009507513-1810USA001735

PATIENT
  Sex: Female
  Weight: 102.4 kg

DRUGS (2)
  1. VITAMINS (UNSPECIFIED) [Concomitant]
     Active Substance: VITAMINS
  2. NEXPLANON [Suspect]
     Active Substance: ETONOGESTREL
     Indication: MENSTRUATION IRREGULAR
     Dosage: 1 IMPLANT, LEFT ARM, 3 YEARS
     Route: 059
     Dates: start: 20160418

REACTIONS (6)
  - Mood altered [Unknown]
  - Schizophrenia [Unknown]
  - Aggression [Unknown]
  - Hormone level abnormal [Unknown]
  - Product use in unapproved indication [Unknown]
  - Weight increased [Unknown]
